FAERS Safety Report 5190457-3 (Version None)
Quarter: 2006Q4

REPORT INFORMATION
  Report Type: 
  Country: None (occurrence: None)
  Receive Date: 20061222
  Receipt Date: 20061219
  Transmission Date: 20070319
  Serious: Yes (Death, Life-Threatening, Hospitalization, Other)
  Sender: FDA-Public Use
  Company Number: FR-ELI_LILLY_AND_COMPANY-FR200612003502

PATIENT
  Age: 54 Year
  Sex: Male

DRUGS (5)
  1. ZYPREXA [Suspect]
     Indication: SCHIZOPHRENIA
     Dosage: 10 MG, DAILY (1/D)
     Route: 048
  2. LEPTICUR [Concomitant]
     Dosage: 10 MG, DAILY (1/D)
     Route: 048
  3. THERALENE [Concomitant]
     Dosage: 50 MG, DAILY (1/D)
     Route: 048
  4. DEPAKINE CHRONO                         /CZE/ [Concomitant]
     Dosage: 1500 MG, DAILY (1/D)
     Route: 048
  5. HALOPERIDOL DECANOATE [Concomitant]
     Dosage: 100 MG, DAILY (1/D)
     Route: 030
     Dates: start: 20060725

REACTIONS (12)
  - BLOOD CREATINE PHOSPHOKINASE INCREASED [None]
  - BLOOD CREATININE INCREASED [None]
  - BLOOD UREA INCREASED [None]
  - DEATH [None]
  - FALL [None]
  - HYPERTHERMIA [None]
  - HYPOTENSION [None]
  - MOUTH INJURY [None]
  - PLATELET COUNT DECREASED [None]
  - PROTHROMBIN TIME SHORTENED [None]
  - TACHYCARDIA [None]
  - TRANSAMINASES INCREASED [None]
